FAERS Safety Report 10007486 (Version 1)
Quarter: 2014Q1

REPORT INFORMATION
  Report Type: Spontaneous
  Country: GB (occurrence: GB)
  Receive Date: 20140313
  Receipt Date: 20140313
  Transmission Date: 20141002
  Serious: Yes (Other)
  Sender: FDA-Public Use
  Company Number: GB-TEVA-467855ISR

PATIENT
  Age: 87 Year
  Sex: Female
  Weight: 55 kg

DRUGS (15)
  1. DOXAZOSIN [Suspect]
     Dates: start: 20140129
  2. ALENDRONIC ACID [Concomitant]
     Dates: start: 20131111
  3. AMITRIPTYLINE HYDROCHLORIDE [Concomitant]
     Dates: start: 20131111, end: 20140106
  4. AMLODIPINE [Concomitant]
     Dates: start: 20131111
  5. CALCEOS [Concomitant]
     Dates: start: 20131111
  6. FOSTAIR [Concomitant]
     Dates: start: 20131111
  7. HYPROMELLOSE [Concomitant]
     Dates: start: 20131111
  8. LACRI-LUBE [Concomitant]
     Dates: start: 20131111
  9. LANSOPRAZOLE [Concomitant]
     Dates: start: 20131227
  10. LATANOPROST [Concomitant]
     Dates: start: 20131111
  11. LEVOTHYROXINE [Concomitant]
     Dates: start: 20131111
  12. LOSARTAN [Concomitant]
     Dates: start: 20131111
  13. PARACETAMOL [Concomitant]
     Dates: start: 20131111
  14. SALBUTAMOL [Concomitant]
     Dates: start: 20131111
  15. SIMVASTATIN [Concomitant]
     Dates: start: 20131111

REACTIONS (3)
  - Local swelling [Recovering/Resolving]
  - Musculoskeletal stiffness [Unknown]
  - Peripheral coldness [Unknown]
